FAERS Safety Report 23875415 (Version 1)
Quarter: 2024Q2

REPORT INFORMATION
  Report Type: Spontaneous
  Country: US (occurrence: None)
  Receive Date: 20240519
  Receipt Date: 20240519
  Transmission Date: 20240716
  Serious: Yes (Life-Threatening, Hospitalization, Disabling, Other)
  Sender: FDA-Public Use
  Company Number: None

PATIENT
  Age: 38 Year
  Sex: Male
  Weight: 74.25 kg

DRUGS (2)
  1. ERTAPENEM [Suspect]
     Active Substance: ERTAPENEM
     Indication: Escherichia sepsis
     Dosage: FREQUENCY : DAILY?
     Route: 042
  2. ERTAPENEM [Suspect]
     Active Substance: ERTAPENEM
     Indication: Pathogen resistance

REACTIONS (4)
  - Full blood count abnormal [None]
  - Laboratory test abnormal [None]
  - Pancreatic disorder [None]
  - Product complaint [None]

NARRATIVE: CASE EVENT DATE: 20230917
